FAERS Safety Report 9782226 (Version 9)
Quarter: 2014Q4

REPORT INFORMATION
  Report Type: Spontaneous
  Country: US (occurrence: US)
  Receive Date: 20131226
  Receipt Date: 20141003
  Transmission Date: 20150529
  Serious: Yes (Hospitalization)
  Sender: FDA-Public Use
  Company Number: US-JNJFOC-20131208892

PATIENT
  Age: 57 Year
  Sex: Female
  Weight: 68.04 kg

DRUGS (9)
  1. ESTRACE [Concomitant]
     Active Substance: ESTRADIOL
     Indication: PRODUCT USED FOR UNKNOWN INDICATION
     Route: 065
  2. LEVAQUIN [Concomitant]
     Active Substance: LEVOFLOXACIN
     Indication: ACUTE SINUSITIS
     Route: 065
     Dates: start: 20120113
  3. TYLENOL EXTRA STRENGTH [Suspect]
     Active Substance: ACETAMINOPHEN
     Indication: PAIN
     Dosage: EVERY FOUR HOURS
     Route: 048
     Dates: start: 20120216, end: 20120223
  4. TYLENOL EXTRA STRENGTH [Suspect]
     Active Substance: ACETAMINOPHEN
     Indication: TOOTHACHE
     Dosage: EVERY FOUR HOURS
     Route: 048
     Dates: start: 20120216, end: 20120223
  5. VANCOMYCIN [Concomitant]
     Active Substance: VANCOMYCIN
     Indication: PRODUCT USED FOR UNKNOWN INDICATION
     Route: 065
  6. FLUOROQUINOLONE [Concomitant]
     Indication: PRODUCT USED FOR UNKNOWN INDICATION
     Route: 065
  7. DOXYCYCLINE. [Concomitant]
     Active Substance: DOXYCYCLINE
     Indication: OFF LABEL USE
     Dosage: TWICW DAILY
     Route: 065
  8. ROCEPHIN [Concomitant]
     Active Substance: CEFTRIAXONE SODIUM
     Indication: PRODUCT USED FOR UNKNOWN INDICATION
     Route: 065
  9. PREVACID [Concomitant]
     Active Substance: LANSOPRAZOLE
     Indication: PRODUCT USED FOR UNKNOWN INDICATION
     Route: 065
     Dates: start: 2012

REACTIONS (11)
  - Hepatitis [Recovered/Resolved]
  - Atypical pneumonia [Recovered/Resolved]
  - Acute hepatic failure [Recovering/Resolving]
  - Myalgia [Recovered/Resolved]
  - Spondylolisthesis [Not Recovered/Not Resolved]
  - Accidental overdose [Recovering/Resolving]
  - Toxicity to various agents [Unknown]
  - Headache [Unknown]
  - Pain in extremity [Recovered/Resolved]
  - Hepatic enzyme increased [Recovering/Resolving]
  - Leukocytosis [Recovered/Resolved]

NARRATIVE: CASE EVENT DATE: 201202
